FAERS Safety Report 16758471 (Version 1)
Quarter: 2019Q3

REPORT INFORMATION
  Report Type: Report from Study
  Country: JP (occurrence: JP)
  Receive Date: 20190830
  Receipt Date: 20190830
  Transmission Date: 20191005
  Serious: Yes (Hospitalization)
  Sender: FDA-Public Use
  Company Number: JP-BEH-2019106186

PATIENT
  Age: 66 Year
  Sex: Male
  Weight: 79 kg

DRUGS (21)
  1. WARFARIN [Concomitant]
     Active Substance: WARFARIN
     Dosage: 0.75 MILLIGRAM, 1 DAY
     Route: 048
     Dates: start: 20180302, end: 20180302
  2. DOBUPUM [Concomitant]
     Active Substance: DOBUTAMINE HYDROCHLORIDE
     Indication: SURGERY
     Dosage: UNK
     Route: 065
     Dates: start: 20180303, end: 20180306
  3. PROPOFOL. [Suspect]
     Active Substance: PROPOFOL
     Indication: SURGERY
     Dosage: UNK
     Route: 065
     Dates: start: 20180303, end: 20180304
  4. XYLOCAINE #1 [Concomitant]
     Active Substance: LIDOCAINE
     Indication: SURGERY
     Dosage: UNK
     Route: 065
     Dates: start: 20180302, end: 20180302
  5. KN NO.1 [Concomitant]
     Indication: SURGERY
     Dosage: UNK
     Route: 065
     Dates: start: 20180303, end: 20180314
  6. CEFEPIME DIHYDROCHLORIDE [Concomitant]
     Active Substance: CEFEPIME HYDROCHLORIDE
     Dosage: UNK
     Route: 065
     Dates: start: 20180302
  7. BERIPLEX P/N [Suspect]
     Active Substance: COAGULATION FACTOR IX HUMAN\COAGULATION FACTOR VII HUMAN\COAGULATION FACTOR X HUMAN\PROTEIN C\PROTEIN S HUMAN\PROTHROMBIN
     Indication: SURGERY
     Dosage: 2000 INTERNATIONAL UNIT
     Route: 042
     Dates: start: 20180302
  8. BERIPLEX P/N [Suspect]
     Active Substance: COAGULATION FACTOR IX HUMAN\COAGULATION FACTOR VII HUMAN\COAGULATION FACTOR X HUMAN\PROTEIN C\PROTEIN S HUMAN\PROTHROMBIN
     Indication: SURGERY
     Dosage: 2000 INTERNATIONAL UNIT
     Route: 042
     Dates: start: 20180302
  9. KAYTWO N [Concomitant]
     Active Substance: MENATETRENONE
     Indication: PROCOAGULANT THERAPY
     Dosage: 2 MILLILITER, 1 DAY
     Route: 065
     Dates: start: 20180303, end: 20180303
  10. FAMOTIDINE. [Concomitant]
     Active Substance: FAMOTIDINE
     Indication: SURGERY
     Dosage: UNK
     Route: 065
     Dates: start: 20180302, end: 20180302
  11. GENTACIN [Concomitant]
     Active Substance: GENTAMICIN SULFATE
     Indication: SURGERY
     Dosage: UNK
     Route: 065
     Dates: start: 20180303, end: 20180319
  12. HEPARIN SODIUM. [Concomitant]
     Active Substance: HEPARIN SODIUM
     Indication: SURGERY
     Dosage: UNK
     Route: 065
     Dates: start: 20180302, end: 20180311
  13. NORADRENALINE [NOREPINEPHRINE] [Concomitant]
     Active Substance: NOREPINEPHRINE
     Indication: SURGERY
     Dosage: UNK
     Route: 065
     Dates: start: 20180303, end: 20180304
  14. TAKEPRON [Concomitant]
     Active Substance: LANSOPRAZOLE
     Indication: SURGERY
     Dosage: UNK
     Route: 065
     Dates: start: 20180303, end: 20180306
  15. HUMULIN R [Concomitant]
     Active Substance: INSULIN HUMAN
     Dosage: UNK
     Route: 065
     Dates: start: 20180303, end: 20180328
  16. BOSMIN [EPINEPHRINE HYDROCHLORIDE] [Concomitant]
     Indication: SURGERY
     Dosage: UNK
     Route: 065
     Dates: start: 20180303, end: 20180304
  17. WARFARIN [Concomitant]
     Active Substance: WARFARIN
     Dosage: 1 MILLIGRAM, DAILY
     Route: 048
     Dates: start: 20180311, end: 20180314
  18. WARFARIN [Concomitant]
     Active Substance: WARFARIN
     Dosage: 0.5 MILLIGRAM DAILY
     Route: 048
     Dates: start: 20180319, end: 20180330
  19. FENTANYL. [Concomitant]
     Active Substance: FENTANYL
     Indication: SURGERY
     Dosage: UNK
     Route: 065
     Dates: start: 20180303, end: 20180306
  20. NICORANDIL [Concomitant]
     Active Substance: NICORANDIL
     Indication: SURGERY
     Dosage: UNK
     Dates: start: 20180303, end: 20180307
  21. RED BLOOD CELLS-LEUKOCYTES REDUCED [Concomitant]
     Active Substance: HUMAN RED BLOOD CELL
     Dosage: 9 UNITS
     Dates: start: 20180302

REACTIONS (1)
  - Postoperative delirium [Unknown]

NARRATIVE: CASE EVENT DATE: 20180303
